FAERS Safety Report 7795030-6 (Version None)
Quarter: 2011Q4

REPORT INFORMATION
  Report Type: 
  Country: None (occurrence: None)
  Receive Date: 20111003
  Receipt Date: 20111003
  Transmission Date: 20120403
  Serious: Yes (Life-Threatening)
  Sender: FDA-Public Use
  Company Number: None

PATIENT
  Age: 61 Year
  Sex: Male
  Weight: 157.4 kg

DRUGS (1)
  1. INSULIN [Suspect]
     Dosage: ML BID
     Dates: start: 20110914

REACTIONS (2)
  - HYPOGLYCAEMIA [None]
  - OVERDOSE [None]
